FAERS Safety Report 10757893 (Version 1)
Quarter: 2015Q1

REPORT INFORMATION
  Report Type: Spontaneous
  Country: US (occurrence: None)
  Receive Date: 20150202
  Receipt Date: 20150202
  Transmission Date: 20150721
  Serious: Yes (Hospitalization)
  Sender: FDA-Public Use
  Company Number: None

PATIENT
  Age: 65 Year
  Sex: Female
  Weight: 51.48 kg

DRUGS (4)
  1. RITUXIMAB [Suspect]
     Active Substance: RITUXIMAB
     Dates: start: 20141015
  2. BISULFAN [Suspect]
     Active Substance: BUSULFAN
     Dates: start: 20130416
  3. FLUDARABINE PHOSPHATE. [Suspect]
     Active Substance: FLUDARABINE PHOSPHATE
     Dates: start: 20130416
  4. METHOTREXATE [Suspect]
     Active Substance: METHOTREXATE
     Dates: start: 20130429

REACTIONS (2)
  - Corneal perforation [None]
  - Ophthalmic herpes simplex [None]

NARRATIVE: CASE EVENT DATE: 20141206
